FAERS Safety Report 5210072-2 (Version None)
Quarter: 2006Q4

REPORT INFORMATION
  Report Type: 
  Country: None (occurrence: None)
  Receive Date: 20061127
  Receipt Date: 20060711
  Transmission Date: 20070319
  Serious: Yes (Hospitalization)
  Sender: FDA-Public Use
  Company Number: 2006BH011771

PATIENT
  Age: 80 Year
  Weight: 85.6 kg

DRUGS (1)
  1. DIANEAL [Suspect]
     Indication: RENAL FAILURE CHRONIC
     Dosage: IP
     Route: 033
     Dates: start: 20060426

REACTIONS (2)
  - PERITONITIS BACTERIAL [None]
  - STREPTOCOCCAL INFECTION [None]
